FAERS Safety Report 26097509 (Version 1)
Quarter: 2025Q4

REPORT INFORMATION
  Report Type: Spontaneous
  Country: CN (occurrence: CN)
  Receive Date: 20251127
  Receipt Date: 20251127
  Transmission Date: 20260118
  Serious: Yes (Other)
  Sender: PFIZER
  Company Number: CN-MLMSERVICE-20251113-PI710925-00270-1

PATIENT
  Age: 68 Year
  Sex: Male

DRUGS (1)
  1. METHYLPREDNISOLONE [Suspect]
     Active Substance: METHYLPREDNISOLONE
     Indication: Nephrotic syndrome
     Dosage: 32 MG/DAY FOR 8 MONTHS (CUMULATIVE DOSE 12.6G)

REACTIONS (10)
  - Disseminated strongyloidiasis [Recovered/Resolved]
  - Strongyloidiasis [Recovered/Resolved]
  - Septic shock [Recovered/Resolved]
  - Renal impairment [Recovered/Resolved]
  - Hepatic function abnormal [Recovered/Resolved]
  - Lung disorder [Recovered/Resolved]
  - Dysbiosis [Recovered/Resolved]
  - Acute kidney injury [Recovered/Resolved]
  - Rhabdomyolysis [Recovered/Resolved]
  - Eosinophilia [Recovered/Resolved]

NARRATIVE: CASE EVENT DATE: 20231201
